FAERS Safety Report 18976294 (Version 1)
Quarter: 2021Q1

REPORT INFORMATION
  Report Type: Spontaneous
  Country: LT (occurrence: LT)
  Receive Date: 20210306
  Receipt Date: 20210306
  Transmission Date: 20210420
  Serious: Yes (Other)
  Sender: FDA-Public Use
  Company Number: LT-JNJFOC-20210309577

PATIENT
  Age: 85 Year
  Sex: Male

DRUGS (1)
  1. RIVAROXABAN [Suspect]
     Active Substance: RIVAROXABAN
     Indication: ATRIAL FIBRILLATION
     Dosage: 20 MG, QD
     Route: 048

REACTIONS (4)
  - Hemiparesis [Unknown]
  - Speech disorder [Unknown]
  - Ischaemic stroke [Unknown]
  - Fall [Unknown]

NARRATIVE: CASE EVENT DATE: 20201118
